FAERS Safety Report 4673261-1 (Version None)
Quarter: 2005Q2

REPORT INFORMATION
  Report Type: 
  Country: None (occurrence: None)
  Receive Date: 20050525
  Receipt Date: 20040901
  Transmission Date: 20051028
  Serious: Yes (Other)
  Sender: FDA-Public Use
  Company Number: US-AMGEN-US089281

PATIENT
  Age: 43 Year
  Sex: Male

DRUGS (9)
  1. ARANESP [Suspect]
     Indication: ANAEMIA OF MALIGNANT DISEASE
     Route: 058
     Dates: start: 20040820, end: 20040820
  2. DOXIL [Concomitant]
     Dates: start: 20040701
  3. TAXOTERE [Concomitant]
     Dates: start: 20040701
  4. GEMZAR [Concomitant]
     Dates: start: 20040701
  5. EMEND [Concomitant]
  6. DECADRON [Concomitant]
  7. EMLA [Concomitant]
  8. XANAX [Concomitant]
  9. MULTI-VITAMINS [Concomitant]

REACTIONS (10)
  - ANAPHYLACTOID REACTION [None]
  - ANGIONEUROTIC OEDEMA [None]
  - DIZZINESS [None]
  - EPISTAXIS [None]
  - HYPOTENSION [None]
  - INJECTION SITE PAIN [None]
  - SKIN ULCER [None]
  - SWOLLEN TONGUE [None]
  - SYNCOPE [None]
  - URTICARIA [None]
